FAERS Safety Report 16432121 (Version 1)
Quarter: 2019Q3

REPORT INFORMATION
  Report Type: Spontaneous
  Country: US (occurrence: US)
  Receive Date: 20190614
  Receipt Date: 20190614
  Transmission Date: 20191004
  Serious: Yes (Other)
  Sender: FDA-Public Use
  Company Number: None

PATIENT
  Age: 2 Year
  Sex: Male

DRUGS (3)
  1. PROBIOTICS [Concomitant]
     Active Substance: PROBIOTICS NOS
  2. POLYETHYLENE GLYCOL 3350. [Suspect]
     Active Substance: POLYETHYLENE GLYCOL 3350
     Indication: HAEMATOCHEZIA
     Dosage: ?          QUANTITY:8.5 GRAM;?
     Route: 048
     Dates: start: 20190520, end: 20190606
  3. MULTIVITAMIN [Concomitant]
     Active Substance: VITAMINS

REACTIONS (7)
  - Neuropsychiatric symptoms [None]
  - Anxiety [None]
  - Mood swings [None]
  - Anger [None]
  - Abnormal behaviour [None]
  - Crying [None]
  - Screaming [None]
